FAERS Safety Report 7629133-3 (Version None)
Quarter: 2011Q3

REPORT INFORMATION
  Report Type: 
  Country: None (occurrence: None)
  Receive Date: 20110701
  Receipt Date: 20110329
  Transmission Date: 20111222
  Serious: Yes (Other)
  Sender: FDA-Public Use
  Company Number: 7050860

PATIENT
  Age: 42 Year
  Sex: Male

DRUGS (1)
  1. REBIF [Suspect]
     Indication: MULTIPLE SCLEROSIS
     Dosage: 44 MCG, 3 IN 1 WK, SUBCUTANEOUS
     Route: 058
     Dates: start: 20100526, end: 20110201

REACTIONS (5)
  - DEPRESSION [None]
  - SUICIDAL IDEATION [None]
  - MOOD SWINGS [None]
  - WEIGHT DECREASED [None]
  - MALAISE [None]
